FAERS Safety Report 5186576-8 (Version None)
Quarter: 2006Q4

REPORT INFORMATION
  Report Type: 
  Country: None (occurrence: None)
  Receive Date: 20061213
  Receipt Date: 20061018
  Transmission Date: 20070319
  Serious: Yes (Hospitalization)
  Sender: FDA-Public Use
  Company Number: 6026653F

PATIENT
  Sex: Male

DRUGS (1)
  1. NIASPAN [Suspect]

REACTIONS (2)
  - FLUSHING [None]
  - PARAESTHESIA [None]
